FAERS Safety Report 5793484-8 (Version None)
Quarter: 2008Q2

REPORT INFORMATION
  Report Type: 
  Country: None (occurrence: None)
  Receive Date: 20080627
  Receipt Date: 20080620
  Transmission Date: 20081010
  Serious: Yes (Other)
  Sender: FDA-Public Use
  Company Number: LU-AMGEN-UK286494

PATIENT
  Sex: Male
  Weight: 70 kg

DRUGS (2)
  1. VECTIBIX [Suspect]
     Indication: COLORECTAL CANCER
     Route: 065
  2. NEXIUM [Concomitant]
     Route: 048
     Dates: start: 20030101

REACTIONS (2)
  - GENERAL PHYSICAL HEALTH DETERIORATION [None]
  - OESOPHAGEAL HAEMORRHAGE [None]
